FAERS Safety Report 7642766-3 (Version None)
Quarter: 2011Q3

REPORT INFORMATION
  Report Type: 
  Country: None (occurrence: None)
  Receive Date: 20110728
  Receipt Date: 20110720
  Transmission Date: 20111222
  Serious: Yes (Other)
  Sender: FDA-Public Use
  Company Number: PHHY2011IR66938

PATIENT
  Age: 5 Year
  Sex: Female

DRUGS (1)
  1. TACROLIMUS [Suspect]

REACTIONS (4)
  - AORTIC STENOSIS [None]
  - MITRAL VALVE INCOMPETENCE [None]
  - DRUG LEVEL ABOVE THERAPEUTIC [None]
  - TRICUSPID VALVE INCOMPETENCE [None]
